FAERS Safety Report 5683242-7 (Version None)
Quarter: 2008Q1

REPORT INFORMATION
  Report Type: 
  Country: None (occurrence: None)
  Receive Date: 20080326
  Receipt Date: 20080311
  Transmission Date: 20080703
  Serious: Yes (Other)
  Sender: FDA-Public Use
  Company Number: 2008S1004398

PATIENT
  Sex: 0

DRUGS (1)
  1. SALBUTAMOL [Suspect]
     Indication: DRUG USE FOR UNKNOWN INDICATION

REACTIONS (4)
  - HYPERGLYCAEMIA [None]
  - HYPERVENTILATION [None]
  - LACTIC ACIDOSIS [None]
  - METABOLIC ACIDOSIS [None]
